FAERS Safety Report 7192305-9 (Version None)
Quarter: 2010Q4

REPORT INFORMATION
  Report Type: 
  Country: None (occurrence: None)
  Receive Date: 20101222
  Receipt Date: 20101222
  Transmission Date: 20110411
  Serious: Yes (Hospitalization)
  Sender: FDA-Public Use
  Company Number: None

PATIENT
  Sex: Male
  Weight: 53 kg

DRUGS (6)
  1. CYTARABINE [Suspect]
     Dosage: 1760 MG
     Dates: end: 20101206
  2. MERCAPTOPURINE [Suspect]
     Dosage: 2100 MG
     Dates: end: 20101209
  3. METHOTREXATE [Suspect]
     Dosage: 60 MG
     Dates: end: 20101117
  4. PEG-L-ASPARAGINASE (PEGASPARAGASE, ONCOSPAR) [Suspect]
     Dosage: 6325 IU
     Dates: end: 20101110
  5. VINCRISTINE SULFATE [Suspect]
     Dosage: 8 MG
     Dates: end: 20101217
  6. CYCLOPHOSPHAMIDE [Suspect]
     Dosage: 2920 MG
     Dates: end: 20101126

REACTIONS (1)
  - HYPERBILIRUBINAEMIA [None]
